FAERS Safety Report 13366528 (Version 1)
Quarter: 2017Q1

REPORT INFORMATION
  Report Type: Spontaneous
  Country: US (occurrence: US)
  Receive Date: 20170323
  Receipt Date: 20170323
  Transmission Date: 20170429
  Serious: No
  Sender: FDA-Public Use
  Company Number: US-009507513-1702USA010390

PATIENT
  Age: 39 Year
  Sex: Male

DRUGS (3)
  1. FLEXALL [Concomitant]
  2. BELSOMRA [Suspect]
     Active Substance: SUVOREXANT
     Indication: INSOMNIA
     Dosage: 15 MG FOR 3 NIGHTS, UNK
     Route: 048
  3. NORCO [Concomitant]
     Active Substance: ACETAMINOPHEN\HYDROCODONE BITARTRATE

REACTIONS (5)
  - Hallucination, auditory [Unknown]
  - Anxiety [Unknown]
  - Abnormal dreams [Unknown]
  - Product use issue [Unknown]
  - Paranoia [Unknown]
